FAERS Safety Report 7598184-X (Version None)
Quarter: 2011Q3

REPORT INFORMATION
  Report Type: 
  Country: None (occurrence: None)
  Receive Date: 20110708
  Receipt Date: 20110705
  Transmission Date: 20111222
  Serious: Yes (Hospitalization)
  Sender: FDA-Public Use
  Company Number: FR-GILEAD-2011-0041328

PATIENT
  Sex: Female
  Weight: 3.36 kg

DRUGS (8)
  1. SUSTIVA [Concomitant]
     Indication: HIV INFECTION
     Dates: end: 20080520
  2. NPH INSULIN [Concomitant]
     Indication: GESTATIONAL DIABETES
     Route: 064
     Dates: start: 20090106
  3. TRUVADA [Suspect]
     Indication: HIV INFECTION
     Dates: end: 20080520
  4. ACTRAPID [Concomitant]
     Indication: GESTATIONAL DIABETES
     Route: 062
     Dates: start: 20090106
  5. KALETRA [Concomitant]
     Dates: start: 20080903
  6. BACTRIM DS [Concomitant]
     Dates: start: 20080903, end: 20081203
  7. TRUVADA [Suspect]
     Route: 064
     Dates: start: 20080903
  8. FERROUS SULFATE TAB [Concomitant]

REACTIONS (2)
  - FOETAL MACROSOMIA [None]
  - MATERNAL CONDITION AFFECTING FOETUS [None]
